FAERS Safety Report 22644952 (Version 1)
Quarter: 2023Q2

REPORT INFORMATION
  Report Type: Spontaneous
  Country: DE (occurrence: DE)
  Receive Date: 20230627
  Receipt Date: 20230627
  Transmission Date: 20230721
  Serious: Yes (Other)
  Sender: FDA-Public Use
  Company Number: DE-SANOFI-01578341

PATIENT
  Sex: Female

DRUGS (2)
  1. FEXOFENADINE [Suspect]
     Active Substance: FEXOFENADINE HYDROCHLORIDE
     Indication: Hypersensitivity
     Dosage: 0.5 DF, BID
     Dates: start: 2023, end: 2023
  2. FEXOFENADINE [Suspect]
     Active Substance: FEXOFENADINE HYDROCHLORIDE
     Indication: Asthma

REACTIONS (6)
  - Angina pectoris [Recovered/Resolved]
  - Cardiac disorder [Recovered/Resolved]
  - Muscle spasms [Unknown]
  - Heart rate increased [Recovered/Resolved]
  - Intentional overdose [Unknown]
  - Wrong technique in product usage process [Unknown]
